FAERS Safety Report 10476562 (Version 10)
Quarter: 2015Q4

REPORT INFORMATION
  Report Type: Report from Study
  Country: US (occurrence: US)
  Receive Date: 20140923
  Receipt Date: 20151111
  Transmission Date: 20160304
  Serious: Yes (Death, Life-Threatening, Hospitalization, Other)
  Sender: FDA-Public Use
  Company Number: 2014SGN01130

PATIENT

DRUGS (20)
  1. RITUXIMAB [Suspect]
     Active Substance: RITUXIMAB
     Indication: DIFFUSE LARGE B-CELL LYMPHOMA
     Dosage: 375 MG/KG, Q21D
     Route: 042
     Dates: start: 20140829, end: 20140829
  2. ALLOPURINOL. [Concomitant]
     Active Substance: ALLOPURINOL
  3. LOSARTAN. [Concomitant]
     Active Substance: LOSARTAN
  4. NEULASTA [Concomitant]
     Active Substance: PEGFILGRASTIM
  5. CYMBALTA [Concomitant]
     Active Substance: DULOXETINE HYDROCHLORIDE
  6. LYRICA [Concomitant]
     Active Substance: PREGABALIN
  7. PROTONIX [Concomitant]
     Active Substance: PANTOPRAZOLE SODIUM
  8. BRENTUXIMAB VEDOTIN [Suspect]
     Active Substance: BRENTUXIMAB VEDOTIN
     Indication: DIFFUSE LARGE B-CELL LYMPHOMA
     Dosage: 1.8 MG/KG, Q21D
     Route: 042
     Dates: start: 20140829, end: 20140829
  9. VINCRISTINE [Suspect]
     Active Substance: VINCRISTINE
     Indication: DIFFUSE LARGE B-CELL LYMPHOMA
     Dosage: 1.4 MG/KG, Q21D
     Route: 042
     Dates: start: 20140829, end: 20140829
  10. ATORVASTATIN [Concomitant]
     Active Substance: ATORVASTATIN
  11. COMPAZINE [Concomitant]
     Active Substance: PROCHLORPERAZINE MALEATE
  12. DIFLUCAN [Concomitant]
     Active Substance: FLUCONAZOLE
  13. XANAX [Concomitant]
     Active Substance: ALPRAZOLAM
     Dosage: 0.5 MG, BID
  14. PREDNISONE. [Suspect]
     Active Substance: PREDNISONE
     Indication: DIFFUSE LARGE B-CELL LYMPHOMA
     Dosage: 500 MG, QCYCLE
     Route: 048
     Dates: start: 20140829, end: 20140902
  15. CYCLOPHOSPHAMIDE. [Suspect]
     Active Substance: CYCLOPHOSPHAMIDE
     Indication: DIFFUSE LARGE B-CELL LYMPHOMA
     Dosage: 750 MG/KG, Q21D
     Route: 042
     Dates: start: 20140829, end: 20140829
  16. NIFEDIPINE. [Concomitant]
     Active Substance: NIFEDIPINE
  17. LEVAQUIN [Concomitant]
     Active Substance: LEVOFLOXACIN
  18. ZOFRAN [Concomitant]
     Active Substance: ONDANSETRON HYDROCHLORIDE
  19. DOXORUBICIN [Suspect]
     Active Substance: DOXORUBICIN
     Indication: DIFFUSE LARGE B-CELL LYMPHOMA
     Dosage: 50 MG/KG, Q21D
     Route: 042
     Dates: start: 20140829, end: 20140829
  20. ACYCLOVIR. [Concomitant]
     Active Substance: ACYCLOVIR

REACTIONS (12)
  - Atrial fibrillation [None]
  - Dehydration [None]
  - Stevens-Johnson syndrome [Not Recovered/Not Resolved]
  - Respiratory failure [Recovered/Resolved]
  - Renal failure [Not Recovered/Not Resolved]
  - Neutropenia [None]
  - Shock [None]
  - Pleural effusion [None]
  - Renal tubular necrosis [None]
  - Large intestinal obstruction [Recovered/Resolved]
  - Sepsis [Fatal]
  - Supraventricular extrasystoles [None]

NARRATIVE: CASE EVENT DATE: 20140905
